FAERS Safety Report 6721512-1 (Version None)
Quarter: 2010Q2

REPORT INFORMATION
  Report Type: 
  Country: None (occurrence: None)
  Receive Date: 20100510
  Receipt Date: 20091209
  Transmission Date: 20101027
  Serious: Yes (Other)
  Sender: FDA-Public Use
  Company Number: 056-20484-08120945

PATIENT
  Age: 49 Year
  Sex: Female
  Weight: 56 kg

DRUGS (1)
  1. INNOHEP [Suspect]
     Indication: PHLEBITIS SUPERFICIAL
     Dosage: 8000 IU (20000 IU, 1 IN 1 D),SUBCUTANEOUS
     Route: 058
     Dates: start: 20081119, end: 20081120

REACTIONS (6)
  - HAEMATOMA [None]
  - INJECTION SITE NECROSIS [None]
  - INJECTION SITE PAIN [None]
  - INJECTION SITE REACTION [None]
  - INTENTIONAL DRUG MISUSE [None]
  - OFF LABEL USE [None]
